FAERS Safety Report 4624884-7 (Version None)
Quarter: 2005Q2

REPORT INFORMATION
  Report Type: 
  Country: None (occurrence: None)
  Receive Date: 20050401
  Receipt Date: 20050321
  Transmission Date: 20051028
  Serious: Yes (Death)
  Sender: FDA-Public Use
  Company Number: FR-BRISTOL-MYERS SQUIBB COMPANY-12905832

PATIENT
  Age: 76 Year
  Sex: Male

DRUGS (8)
  1. PRAVASTATIN [Suspect]
     Route: 048
     Dates: end: 20050210
  2. THERALENE [Suspect]
     Route: 048
     Dates: start: 20041201, end: 20050209
  3. VASTAREL [Suspect]
     Route: 048
     Dates: end: 20050210
  4. KARDEGIC [Suspect]
     Route: 048
     Dates: end: 20050210
  5. ZYPREXA [Suspect]
     Dosage: 10 WEEKS AND 1 DAY
     Route: 048
     Dates: start: 20041201, end: 20050209
  6. ALLOPURINOL [Suspect]
     Route: 048
     Dates: end: 20050210
  7. SEPRAM [Concomitant]
     Dates: start: 20041201, end: 20050209
  8. BRONCHOKOD [Concomitant]
     Dates: end: 20050210

REACTIONS (1)
  - SUDDEN DEATH [None]
